FAERS Safety Report 13782665 (Version 3)
Quarter: 2017Q4

REPORT INFORMATION
  Report Type: Spontaneous
  Country: US (occurrence: US)
  Receive Date: 20170724
  Receipt Date: 20171115
  Transmission Date: 20180320
  Serious: Yes (Other)
  Sender: FDA-Public Use
  Company Number: US-PFIZER INC-2017313352

PATIENT
  Age: 58 Year
  Sex: Female
  Weight: 58.96 kg

DRUGS (3)
  1. CARBOCAINE [Concomitant]
     Active Substance: MEPIVACAINE HYDROCHLORIDE
     Dosage: IN SMALL AMOUNTS
     Route: 004
  2. NOVOCAIN [Suspect]
     Active Substance: PROCAINE HYDROCHLORIDE
     Indication: DENTAL CARE
     Dosage: UNK
     Route: 004
     Dates: start: 2004, end: 20041209
  3. EPINEPHRINE. [Suspect]
     Active Substance: EPINEPHRINE
     Indication: DENTAL CARE
     Dosage: UNK
     Route: 004
     Dates: start: 2004, end: 20041209

REACTIONS (6)
  - Cardiac disorder [Recovered/Resolved]
  - Drug hypersensitivity [Recovered/Resolved]
  - Heart rate decreased [Recovered/Resolved]
  - Hyperhidrosis [Recovered/Resolved]
  - Syncope [Recovered/Resolved]
  - Dyspnoea [Recovered/Resolved]

NARRATIVE: CASE EVENT DATE: 2004
